FAERS Safety Report 7532493-5 (Version None)
Quarter: 2011Q2

REPORT INFORMATION
  Report Type: 
  Country: None (occurrence: None)
  Receive Date: 20110608
  Receipt Date: 20110526
  Transmission Date: 20111010
  Serious: Yes (Hospitalization)
  Sender: FDA-Public Use
  Company Number: PHHY2011US46339

PATIENT
  Sex: Male

DRUGS (4)
  1. DIOVAN [Concomitant]
  2. EXJADE [Suspect]
     Indication: IRON METABOLISM DISORDER
     Dosage: 1500 MG, DAILY
     Route: 048
     Dates: start: 20090101
  3. REVLIMID [Concomitant]
  4. FUROSEMIDE [Concomitant]

REACTIONS (5)
  - FULL BLOOD COUNT DECREASED [None]
  - VOMITING [None]
  - DYSPNOEA [None]
  - DIZZINESS [None]
  - DIARRHOEA [None]
